FAERS Safety Report 8839633 (Version 1)
Quarter: 2012Q4

REPORT INFORMATION
  Report Type: 
  Country: TR (occurrence: TR)
  Receive Date: 20121015
  Receipt Date: 20121015
  Transmission Date: 20130627
  Serious: Yes (Other)
  Sender: FDA-Public Use
  Company Number: TR-BAYER-2012-104609

PATIENT
  Age: 36 Year
  Sex: Female
  Weight: 62 kg

DRUGS (1)
  1. BETAFERON [Suspect]
     Dosage: UNK UNK, QOD
     Route: 058
     Dates: start: 20080903

REACTIONS (1)
  - Extremity necrosis [Not Recovered/Not Resolved]
